FAERS Safety Report 10454079 (Version 2)
Quarter: 2014Q3

REPORT INFORMATION
  Report Type: Spontaneous
  Country: US (occurrence: US)
  Receive Date: 20140915
  Receipt Date: 20140915
  Transmission Date: 20150326
  Serious: No
  Sender: FDA-Public Use
  Company Number: US-BRISTOL-MYERS SQUIBB COMPANY-20987558

PATIENT
  Age: 65 Year
  Sex: Female
  Weight: 104.31 kg

DRUGS (5)
  1. BUSPIRONE [Concomitant]
     Active Substance: BUSPIRONE HYDROCHLORIDE
  2. METOPROLOL [Concomitant]
     Active Substance: METOPROLOL
  3. ZOLOFT [Concomitant]
     Active Substance: SERTRALINE HYDROCHLORIDE
  4. LISINOPRIL. [Concomitant]
     Active Substance: LISINOPRIL
  5. ELIQUIS [Suspect]
     Active Substance: APIXABAN
     Indication: CEREBROVASCULAR ACCIDENT PROPHYLAXIS
     Dates: start: 201310

REACTIONS (3)
  - Hypoaesthesia [Unknown]
  - Hypogeusia [Unknown]
  - Weight decreased [Unknown]
